FAERS Safety Report 5467239-8 (Version None)
Quarter: 2007Q3

REPORT INFORMATION
  Report Type: 
  Country: None (occurrence: None)
  Receive Date: 20070920
  Receipt Date: 20070904
  Transmission Date: 20080115
  Serious: Yes (Death)
  Sender: FDA-Public Use
  Company Number: 8026167

PATIENT
  Age: 44 Year
  Sex: Male
  Weight: 50 kg

DRUGS (4)
  1. KEPPRA [Suspect]
     Dosage: 1000 MG 2/D PO
     Route: 048
     Dates: start: 20030301
  2. TIMONIL [Concomitant]
  3. RIVOTRIL [Concomitant]
  4. ZONEGRAN [Concomitant]

REACTIONS (1)
  - DEATH [None]
